FAERS Safety Report 24728562 (Version 1)
Quarter: 2024Q4

REPORT INFORMATION
  Report Type: Spontaneous
  Country: CH (occurrence: CH)
  Receive Date: 20241212
  Receipt Date: 20241212
  Transmission Date: 20250114
  Serious: Yes (Hospitalization, Disabling, Other)
  Sender: MERCK
  Company Number: None

PATIENT
  Age: 69 Year
  Sex: Female
  Weight: 63 kg

DRUGS (1)
  1. KEYTRUDA [Suspect]
     Active Substance: PEMBROLIZUMAB
     Indication: Triple negative breast cancer
     Dosage: TOTAL 1600 MG (DATES OF ADMINISTRATION : 03/02/2023 ; 24/02/2023 ; 28/04/2023 ; 19/05/2023 ; 07/0...
     Route: 040
     Dates: start: 20230203, end: 20231005

REACTIONS (6)
  - Sjogren^s syndrome [Not Recovered/Not Resolved]
  - Immune-mediated hypophysitis [Not Recovered/Not Resolved]
  - Adrenal insufficiency [Not Recovered/Not Resolved]
  - Immune-mediated thyroiditis [Recovered/Resolved with Sequelae]
  - Hypothyroidism [Not Recovered/Not Resolved]
  - Off label use [Unknown]

NARRATIVE: CASE EVENT DATE: 20230203
